FAERS Safety Report 23630420 (Version 4)
Quarter: 2024Q2

REPORT INFORMATION
  Report Type: Spontaneous
  Country: US (occurrence: US)
  Receive Date: 20240314
  Receipt Date: 20240418
  Transmission Date: 20240715
  Serious: No
  Sender: FDA-Public Use
  Company Number: US-LUPIN PHARMACEUTICALS INC.-2024-01898

PATIENT

DRUGS (1)
  1. GAVILYTE G [Suspect]
     Active Substance: POLYETHYLENE GLYCOL 3350\POTASSIUM CHLORIDE\SODIUM BICARBONATE\SODIUM CHLORIDE\SODIUM SULFATE
     Indication: Bowel preparation
     Dosage: UNK, (ONCE ONLY BY MOUTH)
     Route: 048
     Dates: start: 20240229

REACTIONS (9)
  - Retching [Recovered/Resolved]
  - Drug ineffective [Unknown]
  - Product preparation issue [Unknown]
  - Wrong technique in product usage process [Unknown]
  - Migraine [Unknown]
  - Pain [Unknown]
  - Malaise [Unknown]
  - Product use complaint [Unknown]
  - Product taste abnormal [Unknown]
